FAERS Safety Report 4518454-9 (Version None)
Quarter: 2004Q4

REPORT INFORMATION
  Report Type: 
  Country: None (occurrence: None)
  Receive Date: 20041104
  Receipt Date: 20040824
  Transmission Date: 20050328
  Serious: Yes (Other)
  Sender: FDA-Public Use
  Company Number: PHEH2004US09207

PATIENT
  Age: 59 Year
  Sex: Female

DRUGS (7)
  1. ESTRADERM [Suspect]
     Indication: HORMONE REPLACEMENT THERAPY
     Dosage: TRANSDERMAL
     Route: 062
     Dates: start: 19930820, end: 19970304
  2. MPA (MEDROXYPROGESTERONE ACETATE) [Suspect]
     Dates: start: 19930809, end: 19970501
  3. PROVERA [Suspect]
     Dates: start: 19930809, end: 19970501
  4. PREMARIN [Suspect]
     Dates: start: 19930809, end: 19930820
  5. PREMPHASE 14/14 [Suspect]
     Dates: start: 19970122, end: 19990310
  6. ESTRATEST (ESTROGENS CONJUGATED) [Suspect]
     Dates: start: 19970416, end: 19970501
  7. PREMPRO [Suspect]
     Dates: start: 19990310, end: 19990709

REACTIONS (1)
  - BREAST CANCER [None]
